FAERS Safety Report 12544381 (Version 2)
Quarter: 2016Q3

REPORT INFORMATION
  Report Type: Spontaneous
  Country: US (occurrence: US)
  Receive Date: 20160711
  Receipt Date: 20160725
  Transmission Date: 20161109
  Serious: No
  Sender: FDA-Public Use
  Company Number: US-PFIZER INC-2016303108

PATIENT
  Age: 55 Year
  Sex: Male
  Weight: 77 kg

DRUGS (13)
  1. VALIUM [Concomitant]
     Active Substance: DIAZEPAM
     Indication: NERVE INJURY
     Dosage: 5 MG, UNK
  2. NORCO [Concomitant]
     Active Substance: ACETAMINOPHEN\HYDROCODONE BITARTRATE
     Indication: CANCER PAIN
     Dosage: 10 MG, UNK
  3. SOMA [Concomitant]
     Active Substance: CARISOPRODOL
     Indication: MUSCLE SPASMS
     Dosage: 350 MG, 4X/DAY, (START DATE: THREE OR FOUR YEARS AGO.)
     Route: 048
  4. PROZAC [Concomitant]
     Active Substance: FLUOXETINE HYDROCHLORIDE
     Indication: DEPRESSION
     Dosage: 20 MG, DAILY (ONE CAPSULE BY MOUTH EVERY DAY)
     Route: 048
     Dates: start: 201603
  5. HYDROCODONE [Concomitant]
     Active Substance: HYDROCODONE
     Indication: PAIN
     Dosage: 7.5 MG, UNK
  6. ISOSORBIDE. [Concomitant]
     Active Substance: ISOSORBIDE
     Indication: HYPERTENSION
     Dosage: 15 MG, 1X/DAY (30MG/ONE HALF A TABLET BY MOUTH ONCE A DAY)
     Route: 048
     Dates: start: 2008
  7. VALIUM [Concomitant]
     Active Substance: DIAZEPAM
     Dosage: 40 MG, DAILY
     Route: 048
  8. XALKORI [Suspect]
     Active Substance: CRIZOTINIB
     Indication: LUNG CARCINOMA CELL TYPE UNSPECIFIED STAGE IV
     Dosage: 250 MG, 2X/DAY
     Route: 048
     Dates: start: 2016, end: 201606
  9. LASIX [Concomitant]
     Active Substance: FUROSEMIDE
     Indication: FLUID RETENTION
     Dosage: 40 MG, AS NEEDED, (ONE TABLET BY MOUTH EVERY MORNING IF NEEDED), (TWO OR THREE MONTHS AGO)
     Route: 048
  10. HYDROCODONE [Concomitant]
     Active Substance: HYDROCODONE
     Dosage: 40 MG, DAILY (10MG ONE TABLET BY MOUTH FOUR TABLETS A DAY)
     Route: 048
  11. ISOSORBIDE. [Concomitant]
     Active Substance: ISOSORBIDE
     Indication: CARDIAC DISORDER
     Dosage: UNK UNK, 1X/DAY, ^A QUARTER OF THE TABLET^
     Route: 048
     Dates: start: 2008
  12. PROTONIX [Concomitant]
     Active Substance: PANTOPRAZOLE SODIUM
     Indication: ULCER
     Dosage: 40 MG, 1X/DAY (ONE TABLET BY MOUTH ONCE DAILY)
     Route: 048
  13. ASPIRIN. [Concomitant]
     Active Substance: ASPIRIN
     Indication: BLOOD DISORDER
     Dosage: 81 MG, DAILY, (ONE TABLET BY MOUTH DAILY), (HE USED TO BE ON ANOTHER TYPE OF BLOOD THINNER PREVIOUS)
     Dates: start: 2008

REACTIONS (6)
  - Sleep disorder [Unknown]
  - Pruritus generalised [Recovering/Resolving]
  - Hypertension [Recovering/Resolving]
  - Heart rate increased [Recovering/Resolving]
  - Chills [Not Recovered/Not Resolved]
  - Pyrexia [Not Recovered/Not Resolved]

NARRATIVE: CASE EVENT DATE: 2016
